FAERS Safety Report 14738057 (Version 2)
Quarter: 2018Q3

REPORT INFORMATION
  Report Type: Spontaneous
  Country: GB (occurrence: GB)
  Receive Date: 20180409
  Receipt Date: 20180827
  Transmission Date: 20181010
  Serious: Yes (Other)
  Sender: FDA-Public Use
  Company Number: GB-PFIZER INC-2018140551

PATIENT
  Age: 18 Year
  Sex: Female
  Weight: 93 kg

DRUGS (3)
  1. PROMETHAZINE HYDROCHLORIDE. [Concomitant]
     Active Substance: PROMETHAZINE HYDROCHLORIDE
     Indication: SLEEP DISORDER
     Dosage: 1 DF, AT NIGHT AS NESESSARY
     Dates: start: 20180213
  2. VARENICLINE [Concomitant]
     Active Substance: VARENICLINE
     Dosage: 2 DF, 1X/DAY
     Dates: start: 20180102, end: 20180116
  3. SERTRALINE HCL [Suspect]
     Active Substance: SERTRALINE HYDROCHLORIDE
     Dosage: UNK
     Dates: start: 20180213, end: 20180215

REACTIONS (3)
  - Hypersensitivity [Recovered/Resolved]
  - Joint swelling [Recovered/Resolved]
  - Pharyngeal oedema [Recovered/Resolved]

NARRATIVE: CASE EVENT DATE: 2018
